FAERS Safety Report 8123932-X (Version None)
Quarter: 2012Q1

REPORT INFORMATION
  Report Type: 
  Country: None (occurrence: None)
  Receive Date: 20120209
  Receipt Date: 20120127
  Transmission Date: 20120608
  Serious: Yes (Hospitalization)
  Sender: FDA-Public Use
  Company Number: JP-AMGEN-JPNSP2011069180

PATIENT
  Age: 67 Year
  Sex: Female
  Weight: 48 kg

DRUGS (8)
  1. ENBREL [Suspect]
     Dosage: 25 MG, EVERY 4 WEEKS
     Route: 058
     Dates: start: 20090122, end: 20110810
  2. PREDNISOLONE [Concomitant]
     Indication: RHEUMATOID ARTHRITIS
     Dosage: 5 MG, 1X/DAY
     Route: 048
     Dates: start: 20040118, end: 20110804
  3. MOBIC [Concomitant]
     Dosage: 5 MG, 1X/DAY
     Route: 048
     Dates: start: 20041118, end: 20110804
  4. SELBEX [Concomitant]
     Dosage: 50 MG, 2X/DAY
     Route: 048
     Dates: start: 20041118, end: 20110804
  5. ENBREL [Suspect]
     Indication: RHEUMATOID ARTHRITIS
     Dosage: 25 MG, WEEKLY
     Route: 058
     Dates: start: 20050421, end: 20060607
  6. ENBREL [Suspect]
     Dosage: 25 MG, EVERY 2 WEEKS
     Route: 058
     Dates: start: 20060608, end: 20080702
  7. MOBIC [Concomitant]
     Dosage: 10 MG, 1X/DAY
     Route: 048
     Dates: start: 20041118, end: 20110804
  8. ENBREL [Suspect]
     Dosage: UNK, EVERY 2 WEEKS
     Route: 058
     Dates: start: 20080703, end: 20090121

REACTIONS (1)
  - LACUNAR INFARCTION [None]
